FAERS Safety Report 10494127 (Version 1)
Quarter: 2014Q4

REPORT INFORMATION
  Report Type: Spontaneous
  Country: US (occurrence: None)
  Receive Date: 20141002
  Receipt Date: 20141002
  Transmission Date: 20150528
  Serious: No
  Sender: FDA-Public Use
  Company Number: None

PATIENT
  Age: 27 Year
  Sex: Female
  Weight: 96.62 kg

DRUGS (2)
  1. PHENAZOPYRIDINE. [Suspect]
     Active Substance: PHENAZOPYRIDINE
     Indication: CYSTITIS
     Dosage: 1 TABLET, THREE TIMES DAILY, TAKEN BY MOUTH
     Route: 048
     Dates: start: 20140928, end: 20140928
  2. PHENAZOPYRIDINE. [Suspect]
     Active Substance: PHENAZOPYRIDINE
     Indication: PAIN
     Dosage: 1 TABLET, THREE TIMES DAILY, TAKEN BY MOUTH
     Route: 048
     Dates: start: 20140928, end: 20140928

REACTIONS (2)
  - Vomiting [None]
  - Nausea [None]

NARRATIVE: CASE EVENT DATE: 20140928
